FAERS Safety Report 25789666 (Version 1)
Quarter: 2025Q3

REPORT INFORMATION
  Report Type: Spontaneous
  Country: US (occurrence: US)
  Receive Date: 20250911
  Receipt Date: 20250911
  Transmission Date: 20251021
  Serious: Yes (Other)
  Sender: IPCA
  Company Number: US-IPCA LABORATORIES LIMITED-IPC-2025-US-002447

PATIENT

DRUGS (2)
  1. ATENOLOL [Suspect]
     Active Substance: ATENOLOL
     Indication: Chronic left ventricular failure
     Route: 065
  2. IVABRADINE [Suspect]
     Active Substance: IVABRADINE
     Indication: Chronic left ventricular failure
     Route: 065

REACTIONS (7)
  - Suicide attempt [Unknown]
  - Hypotension [Unknown]
  - Bradycardia [Unknown]
  - Toxicity to various agents [Unknown]
  - Fatigue [Unknown]
  - Somnolence [Unknown]
  - Overdose [Unknown]
